FAERS Safety Report 20520181 (Version 9)
Quarter: 2023Q1

REPORT INFORMATION
  Report Type: Report from Study
  Country: IN (occurrence: IN)
  Receive Date: 20220225
  Receipt Date: 20230307
  Transmission Date: 20230417
  Serious: Yes (Death, Life-Threatening, Hospitalization, Other)
  Sender: FDA-Public Use
  Company Number: IN-JNJFOC-20220139211

PATIENT
  Age: 76 Year
  Sex: Male
  Weight: 60 kg

DRUGS (10)
  1. IBRUTINIB [Suspect]
     Active Substance: IBRUTINIB
     Indication: Chronic lymphocytic leukaemia
     Route: 048
     Dates: start: 20211229, end: 20220202
  2. CLONAZEPAM [Concomitant]
     Active Substance: CLONAZEPAM
     Indication: Prophylaxis
     Route: 048
     Dates: start: 20220118
  3. ASPIRIN [Concomitant]
     Active Substance: ASPIRIN
     Indication: Hypertension
     Route: 048
     Dates: start: 20220118
  4. RITUXIMAB [Concomitant]
     Active Substance: RITUXIMAB
     Indication: Chronic lymphocytic leukaemia
     Dosage: 4 CYCLES
     Route: 042
     Dates: start: 20190704, end: 20190730
  5. MET XL [Concomitant]
     Indication: Hypertension
     Route: 048
     Dates: start: 20200702
  6. CILNIDIPINE [Concomitant]
     Active Substance: CILNIDIPINE
     Indication: Hypertension
     Route: 048
     Dates: start: 20200702
  7. GLIZID [Concomitant]
     Indication: Diabetes mellitus
     Route: 048
     Dates: start: 20210702
  8. ECOSPIRIN AV 150 [Concomitant]
     Indication: Hypertension
     Route: 048
     Dates: start: 20200702
  9. URIMAX D [Concomitant]
     Indication: Benign prostatic hyperplasia
     Dosage: 1 CAPSULE
     Route: 048
     Dates: start: 20200705
  10. LASIX [Concomitant]
     Active Substance: FUROSEMIDE
     Indication: Product used for unknown indication
     Route: 042

REACTIONS (2)
  - Bronchopulmonary aspergillosis [Fatal]
  - COVID-19 [Recovered/Resolved]

NARRATIVE: CASE EVENT DATE: 20220118
